FAERS Safety Report 8682068 (Version 3)
Quarter: 2013Q1

REPORT INFORMATION
  Report Type: Spontaneous
  Country: IT (occurrence: HR)
  Receive Date: 20120725
  Receipt Date: 20130221
  Transmission Date: 20140127
  Serious: Yes (Other)
  Sender: FDA-Public Use
  Company Number: HR-FRI-1000037178

PATIENT
  Sex: Female

DRUGS (5)
  1. NEBIVOLOL [Suspect]
     Indication: HYPERTENSION
     Dosage: 2.5 MG
     Route: 048
     Dates: start: 20120525, end: 20120713
  2. NEBIVOLOL [Suspect]
     Indication: HYPERTENSION
  3. CILAZIL [Concomitant]
  4. GLURENORM [Concomitant]
     Dosage: 30 MG
     Route: 048
  5. LERCANIL [Concomitant]
     Indication: HYPERTENSION
     Route: 048

REACTIONS (4)
  - Oedema peripheral [Not Recovered/Not Resolved]
  - Peripheral coldness [Recovered/Resolved]
  - Erythrocyanosis [Recovering/Resolving]
  - Oedema peripheral [Recovered/Resolved]
